FAERS Safety Report 5573172-3 (Version None)
Quarter: 2007Q4

REPORT INFORMATION
  Report Type: 
  Country: None (occurrence: None)
  Receive Date: 20071220
  Receipt Date: 20071205
  Transmission Date: 20080405
  Serious: Yes (Hospitalization)
  Sender: FDA-Public Use
  Company Number: DSM-2007-00957

PATIENT
  Age: 79 Year
  Sex: Female

DRUGS (5)
  1. OLMESARTAN MEDOXOMIL [Suspect]
     Indication: HYPERTENSION
     Dosage: 20 MG, ORAL, ORAL
     Route: 048
     Dates: start: 20041220, end: 20060824
  2. OLMESARTAN MEDOXOMIL [Suspect]
     Indication: HYPERTENSION
     Dosage: 20 MG, ORAL, ORAL
     Route: 048
     Dates: start: 20060901, end: 20070926
  3. FOSAVANCE (ALENDRONAT/COLECALIFEROL) [Concomitant]
  4. LEVOTHYROXINE (LEVOTHYROXINE) (LEVOTHYROXINE) [Concomitant]
  5. CALCIOUM CARBONATE/COLECALCIGEROL (COLECALCIFEROL, CALCIUM CARBONATE) [Concomitant]

REACTIONS (5)
  - CONFUSIONAL STATE [None]
  - DISEASE RECURRENCE [None]
  - HYPERTENSION [None]
  - HYPONATRAEMIA [None]
  - MALAISE [None]
